FAERS Safety Report 8524491-X (Version None)
Quarter: 2012Q3

REPORT INFORMATION
  Report Type: 
  Country: None (occurrence: None)
  Receive Date: 20120720
  Receipt Date: 20120711
  Transmission Date: 20120928
  Serious: Yes (Death, Other)
  Sender: FDA-Public Use
  Company Number: CA-ABBOTT-11P-028-0731829-00

PATIENT
  Sex: Female
  Weight: 60 kg

DRUGS (6)
  1. HUMIRA [Suspect]
     Route: 058
     Dates: end: 20110608
  2. QUININE SULFATE [Concomitant]
     Indication: MUSCLE SPASMS
     Route: 048
     Dates: start: 20090601
  3. HUMIRA [Suspect]
     Route: 058
     Dates: start: 20100901, end: 20110201
  4. DESLORATADINE [Concomitant]
     Indication: HYPERSENSITIVITY
     Route: 048
     Dates: start: 20090801
  5. SYMBICORT [Concomitant]
     Indication: ASTHMA
     Dosage: PUFF
     Dates: start: 20080101
  6. HUMIRA [Suspect]
     Indication: CROHN'S DISEASE
     Route: 058
     Dates: start: 20081028, end: 20100901

REACTIONS (1)
  - BREAST CANCER METASTATIC [None]
